FAERS Safety Report 5699138-0 (Version None)
Quarter: 2008Q2

REPORT INFORMATION
  Report Type: 
  Country: None (occurrence: None)
  Receive Date: 20080407
  Receipt Date: 20080407
  Transmission Date: 20081010
  Serious: Yes (Other)
  Sender: FDA-Public Use
  Company Number: None

PATIENT
  Sex: Female
  Weight: 49.8957 kg

DRUGS (2)
  1. ACIPHEX [Suspect]
     Indication: DYSPHONIA
     Dosage: 1 TABLET -20 MG- DAILY PO
     Route: 048
     Dates: start: 20060615, end: 20070915
  2. ACIPHEX [Suspect]
     Indication: GASTROOESOPHAGEAL REFLUX DISEASE
     Dosage: 1 TABLET -20 MG- DAILY PO
     Route: 048
     Dates: start: 20060615, end: 20070915

REACTIONS (1)
  - ANAEMIA [None]
